FAERS Safety Report 9611567 (Version 3)
Quarter: 2014Q1

REPORT INFORMATION
  Report Type: Spontaneous
  Country: JP (occurrence: JP)
  Receive Date: 20131010
  Receipt Date: 20140130
  Transmission Date: 20141002
  Serious: Yes (Hospitalization)
  Sender: FDA-Public Use
  Company Number: PHHY2013JP113130

PATIENT
  Age: 74 Year
  Sex: Female

DRUGS (2)
  1. FEMARA [Suspect]
     Indication: BREAST CANCER
     Dosage: 2.5 MG, DAILY
     Route: 048
     Dates: start: 2009, end: 20131006
  2. RHEUMATREX [Suspect]
     Dosage: 8 MG, WEEKLY
     Route: 048
     Dates: start: 2009, end: 20131006

REACTIONS (1)
  - Interstitial lung disease [Recovering/Resolving]
